FAERS Safety Report 9363758 (Version 1)
Quarter: 2013Q2

REPORT INFORMATION
  Report Type: Spontaneous
  Country: FR (occurrence: FR)
  Receive Date: 20130624
  Receipt Date: 20130624
  Transmission Date: 20140414
  Serious: Yes (Other)
  Sender: FDA-Public Use
  Company Number: FR-009507513-1306FRA007170

PATIENT
  Age: 75 Year
  Sex: Female

DRUGS (5)
  1. FOSAVANCE [Suspect]
     Indication: OSTEOPOROSIS
     Dosage: 1 DF, QW
     Route: 048
     Dates: start: 2003, end: 20100626
  2. FOSAVANCE [Suspect]
     Indication: OSTEOPENIA
  3. EVISTA [Concomitant]
  4. TAHOR [Concomitant]
  5. PROGESTERONE [Concomitant]

REACTIONS (1)
  - Osteonecrosis [Unknown]
